FAERS Safety Report 9551876 (Version 1)
Quarter: 2013Q3

REPORT INFORMATION
  Report Type: Report from Study
  Country: US (occurrence: US)
  Receive Date: 20130925
  Receipt Date: 20130925
  Transmission Date: 20140515
  Serious: Yes (Hospitalization)
  Sender: FDA-Public Use
  Company Number: US-MERCK-1309USA009403

PATIENT
  Age: 67 Year
  Sex: Male
  Weight: 85 kg

DRUGS (12)
  1. VORINOSTAT [Suspect]
     Indication: DIFFUSE LARGE B-CELL LYMPHOMA
     Dosage: CYCLE 6: 21 DAYS; 400 MG, QD ON DAYS 1-5
     Route: 048
     Dates: start: 20130813, end: 20130817
  2. VORINOSTAT [Suspect]
     Dosage: 400 MG, UNK
     Route: 048
     Dates: start: 20130423, end: 20130427
  3. RITUXIMAB [Suspect]
     Indication: DIFFUSE LARGE B-CELL LYMPHOMA
     Dosage: CYCLE 6: 21 DAYS; 375 MG/M2 INFUSION ON DAY 3
     Route: 042
     Dates: start: 20130815, end: 20130815
  4. RITUXIMAB [Suspect]
     Dosage: CYCLE 1: 21 DAYS; 375 MG/M2 INFUSION ON DAY 3
     Route: 042
     Dates: start: 20130425, end: 20130425
  5. CYCLOPHOSPHAMIDE [Suspect]
     Indication: DIFFUSE LARGE B-CELL LYMPHOMA
     Dosage: CYCLE 6: 21 DAYS; 750 MG/M2 OVER 30-60 MINUTES ON DAY 3
     Route: 042
     Dates: start: 20130815, end: 20130815
  6. CYCLOPHOSPHAMIDE [Suspect]
     Dosage: CYCLE 1: 21 DAYS; 750 MG/M2 OVER 30-60 MINUTES ON DAY 3
     Route: 042
     Dates: start: 20130425, end: 20130425
  7. DOXORUBICIN [Suspect]
     Indication: DIFFUSE LARGE B-CELL LYMPHOMA
     Dosage: CYCLE 6: 21 DAYS; 50 MG/M2 IVP ON DAY 3
     Route: 042
     Dates: start: 20130815, end: 20130815
  8. DOXORUBICIN [Suspect]
     Dosage: CYCLE 1: 21 DAYS; 50 MG/M2 IVP ON DAY 3
     Route: 042
     Dates: start: 20130425, end: 20130425
  9. VINCRISTINE [Suspect]
     Indication: DIFFUSE LARGE B-CELL LYMPHOMA
     Dosage: CYCLE 6: 21 DAYS; 1.4 MG/M2 IVP ON DAY 3
     Route: 042
     Dates: start: 20130815, end: 20130815
  10. VINCRISTINE [Suspect]
     Dosage: CYCLE 1: 21 DAYS; 1.4 MG/M2 IVP ON DAY 3
     Route: 042
     Dates: start: 20130425, end: 20130425
  11. PREDNISONE [Suspect]
     Indication: DIFFUSE LARGE B-CELL LYMPHOMA
     Dosage: CYCLE 6: 21 DAYS; 100 MG PO QD ON DAYS 3-7
     Route: 048
     Dates: start: 20130815, end: 20130819
  12. PREDNISONE [Suspect]
     Dosage: CYCLE 1: 21 DAYS; 100 MG PO QD ON DAYS 3-7
     Route: 048
     Dates: start: 20130425, end: 20130429

REACTIONS (1)
  - Febrile neutropenia [Recovered/Resolved]
